FAERS Safety Report 5529318-6 (Version None)
Quarter: 2007Q4

REPORT INFORMATION
  Report Type: 
  Country: None (occurrence: None)
  Receive Date: 20071129
  Receipt Date: 20071121
  Transmission Date: 20080405
  Serious: Yes (Death, Life-Threatening, Hospitalization, Disabling)
  Sender: FDA-Public Use
  Company Number: US-MERCK-0711USA03602

PATIENT
  Age: 39 Year
  Sex: Male

DRUGS (4)
  1. CANCIDAS [Suspect]
     Route: 042
     Dates: start: 20071101
  2. CANCIDAS [Suspect]
     Route: 042
     Dates: start: 20071101
  3. LEVAQUIN [Concomitant]
     Route: 065
  4. SEPTRA [Concomitant]
     Route: 065

REACTIONS (1)
  - PNEUMOCYSTIS JIROVECI PNEUMONIA [None]
